FAERS Safety Report 23777580 (Version 1)
Quarter: 2024Q2

REPORT INFORMATION
  Report Type: Spontaneous
  Country: US (occurrence: None)
  Receive Date: 20240423
  Receipt Date: 20240423
  Transmission Date: 20240717
  Serious: No
  Sender: FDA-Public Use
  Company Number: None

PATIENT
  Sex: 0

DRUGS (15)
  1. TACROLIMUS [Suspect]
     Active Substance: TACROLIMUS
     Indication: Liver transplant
     Dosage: 2 MG TWICE A DAY ORAL
     Route: 048
     Dates: start: 20140723
  2. PANTOPRAZOLE [Concomitant]
  3. SYNTHROID [Concomitant]
  4. CITALOPRAM [Concomitant]
  5. aspirin [Concomitant]
  6. VITAMIN D3 [Concomitant]
  7. CHLORHEXIDINE [Concomitant]
  8. CLINDAMYCIN [Concomitant]
  9. dexamethosone [Concomitant]
  10. DOXYCYCLINE [Concomitant]
  11. EVEROLIMUS [Concomitant]
  12. LEVOFLOXACIN [Concomitant]
  13. ONDANSETRON [Concomitant]
  14. OXYCODONE [Concomitant]
  15. simulant [Concomitant]

REACTIONS (1)
  - Skin cancer [None]
